FAERS Safety Report 23381888 (Version 1)
Quarter: 2024Q1

REPORT INFORMATION
  Report Type: Spontaneous
  Country: US (occurrence: None)
  Receive Date: 20240108
  Receipt Date: 20240108
  Transmission Date: 20240410
  Serious: Yes (Hospitalization, Disabling)
  Sender: FDA-Public Use
  Company Number: None

PATIENT
  Age: 49 Year
  Sex: 0
  Weight: 83.7 kg

DRUGS (13)
  1. GADOLINIUM [Suspect]
     Active Substance: GADOLINIUM
     Indication: Magnetic resonance imaging head
     Dosage: OTHER QUANTITY : 15 INJECTION(S);?OTHER FREQUENCY : RANDOMLY;?
     Route: 008
  2. DEVICE [Concomitant]
     Active Substance: DEVICE
  3. walker [Concomitant]
  4. adult briefs [Concomitant]
  5. SEROQUEL [Concomitant]
     Active Substance: QUETIAPINE FUMARATE
  6. GABAPENTIN [Concomitant]
     Active Substance: GABAPENTIN
  7. prilossec [Concomitant]
  8. WAKIX [Concomitant]
     Active Substance: PITOLISANT HYDROCHLORIDE
  9. ATIVAN [Concomitant]
     Active Substance: LORAZEPAM
  10. DEXTROAMPHETAMINE [Concomitant]
     Active Substance: DEXTROAMPHETAMINE
  11. PROVIGIL [Concomitant]
     Active Substance: MODAFINIL
  12. TRAZODONE [Concomitant]
     Active Substance: TRAZODONE HYDROCHLORIDE
  13. Vitamin C [Concomitant]

REACTIONS (5)
  - Neurogenic bladder [None]
  - Dementia [None]
  - Skin hypertrophy [None]
  - Agitation [None]
  - Hyperhidrosis [None]

NARRATIVE: CASE EVENT DATE: 19990601
